FAERS Safety Report 21470520 (Version 10)
Quarter: 2022Q4

REPORT INFORMATION
  Report Type: Report from Study
  Country: GB (occurrence: GB)
  Receive Date: 20221018
  Receipt Date: 20221203
  Transmission Date: 20230113
  Serious: Yes (Congenital Anomaly, Other)
  Sender: FDA-Public Use
  Company Number: GB-ABBVIE-4152842

PATIENT
  Sex: Female
  Weight: 2.48 kg

DRUGS (9)
  1. RITONAVIR [Suspect]
     Active Substance: RITONAVIR
     Indication: Maternal exposure timing unspecified
     Route: 064
  2. ISENTRESS [Suspect]
     Active Substance: RALTEGRAVIR POTASSIUM
     Indication: Maternal exposure timing unspecified
     Route: 064
  3. EMTRICITABINE [Suspect]
     Active Substance: EMTRICITABINE
     Indication: Maternal exposure timing unspecified
     Route: 064
  4. EMTRICITABINE\TENOFOVIR DISOPROXIL FUMARATE [Suspect]
     Active Substance: EMTRICITABINE\TENOFOVIR DISOPROXIL FUMARATE
     Indication: Maternal exposure timing unspecified
     Route: 064
  5. REYATAZ [Suspect]
     Active Substance: ATAZANAVIR SULFATE
     Indication: Maternal exposure timing unspecified
     Route: 064
  6. STRIBILD [Suspect]
     Active Substance: COBICISTAT\ELVITEGRAVIR\EMTRICITABINE\TENOFOVIR DISOPROXIL FUMARATE
     Indication: Maternal exposure timing unspecified
     Route: 064
  7. TIVICAY [Suspect]
     Active Substance: DOLUTEGRAVIR SODIUM
     Indication: Maternal exposure timing unspecified
     Route: 064
  8. ATAZANAVIR [Concomitant]
     Active Substance: ATAZANAVIR
     Indication: Maternal exposure timing unspecified
     Route: 064
  9. DOLUTEGRAVIR [Concomitant]
     Active Substance: DOLUTEGRAVIR
     Indication: Maternal exposure timing unspecified
     Route: 064

REACTIONS (3)
  - Renal dysplasia [Unknown]
  - Foetal exposure during pregnancy [Unknown]
  - Single functional kidney [Unknown]
